FAERS Safety Report 7319619-3 (Version None)
Quarter: 2011Q1

REPORT INFORMATION
  Report Type: 
  Country: None (occurrence: None)
  Receive Date: 20110228
  Receipt Date: 20100616
  Transmission Date: 20110831
  Serious: No
  Sender: FDA-Public Use
  Company Number: A0865519A

PATIENT
  Sex: Female

DRUGS (4)
  1. ZOLOFT [Suspect]
     Route: 065
  2. TOPAMAX [Suspect]
     Route: 065
  3. LAMOTRIGINE [Suspect]
     Indication: PSYCHOTIC DISORDER
     Dosage: 200MG PER DAY
     Route: 048
     Dates: start: 20090101
  4. UNSPECIFIED MEDICATION [Suspect]

REACTIONS (2)
  - ROAD TRAFFIC ACCIDENT [None]
  - MEMORY IMPAIRMENT [None]
